FAERS Safety Report 7604707-4 (Version None)
Quarter: 2011Q3

REPORT INFORMATION
  Report Type: 
  Country: None (occurrence: None)
  Receive Date: 20110712
  Receipt Date: 20110629
  Transmission Date: 20111222
  Serious: Yes (Other)
  Sender: FDA-Public Use
  Company Number: SE-MYLANLABS-2011S1013539

PATIENT
  Age: 14 Year
  Sex: Female

DRUGS (3)
  1. CLOMIPRAMINE HYDROCHLORIDE [Suspect]
     Indication: OBSESSIVE-COMPULSIVE DISORDER
     Dates: start: 20110314
  2. PROPAVAN [Concomitant]
     Indication: SLEEP DISORDER
     Dates: start: 20110509
  3. CLOMIPRAMINE HYDROCHLORIDE [Suspect]

REACTIONS (3)
  - DRUG LEVEL DECREASED [None]
  - OBSESSIVE-COMPULSIVE DISORDER [None]
  - DRUG INEFFECTIVE [None]
